FAERS Safety Report 17852408 (Version 1)
Quarter: 2020Q2

REPORT INFORMATION
  Report Type: Spontaneous
  Country: US (occurrence: US)
  Receive Date: 20200602
  Receipt Date: 20200602
  Transmission Date: 20200714
  Serious: No
  Sender: FDA-Public Use
  Company Number: US-ELI_LILLY_AND_COMPANY-US202006000997

PATIENT
  Age: 67 Year
  Sex: Female

DRUGS (1)
  1. EMGALITY [Suspect]
     Active Substance: GALCANEZUMAB-GNLM
     Indication: MIGRAINE
     Dosage: 120 MG
     Route: 058
     Dates: start: 201908

REACTIONS (6)
  - Injection site reaction [Recovering/Resolving]
  - Injection site urticaria [Recovering/Resolving]
  - Injection site haematoma [Recovered/Resolved]
  - Cellulitis [Recovering/Resolving]
  - Injection site pruritus [Recovering/Resolving]
  - Injection site erythema [Recovering/Resolving]

NARRATIVE: CASE EVENT DATE: 202001
